FAERS Safety Report 7155918-6 (Version None)
Quarter: 2010Q4

REPORT INFORMATION
  Report Type: 
  Country: None (occurrence: None)
  Receive Date: 20101214
  Receipt Date: 20101202
  Transmission Date: 20110411
  Serious: Yes (Hospitalization)
  Sender: FDA-Public Use
  Company Number: DE-SANOFI-AVENTIS-2010SA073142

PATIENT
  Age: 64 Year
  Sex: Female
  Weight: 78.8 kg

DRUGS (7)
  1. DOCETAXEL [Suspect]
     Indication: BREAST CANCER
     Route: 041
     Dates: start: 20100908, end: 20100908
  2. DOCETAXEL [Suspect]
     Route: 041
  3. CYCLOPHOSPHAMIDE [Suspect]
     Indication: BREAST CANCER
     Route: 041
     Dates: start: 20100908, end: 20100908
  4. CYCLOPHOSPHAMIDE [Suspect]
     Route: 041
  5. APREPITANT [Suspect]
     Route: 048
     Dates: start: 20100908
  6. FORTECORTIN [Suspect]
     Route: 042
     Dates: start: 20100908
  7. KEVATRIL [Suspect]
     Route: 042
     Dates: start: 20100908

REACTIONS (1)
  - THROMBOSIS IN DEVICE [None]
